FAERS Safety Report 8090953-5 (Version None)
Quarter: 2012Q1

REPORT INFORMATION
  Report Type: 
  Country: None (occurrence: None)
  Receive Date: 20120128
  Receipt Date: 20110729
  Transmission Date: 20120608
  Serious: No
  Sender: FDA-Public Use
  Company Number: US-ABBOTT-11P-163-0842808-00

PATIENT
  Sex: Female

DRUGS (1)
  1. HUMIRA [Suspect]
     Indication: PSORIASIS
     Dosage: 1 EVERY OTHER WEEK - 2 DOSES
     Route: 058
     Dates: start: 20110701, end: 20110701

REACTIONS (4)
  - DYSPNOEA [None]
  - SENSATION OF FOREIGN BODY [None]
  - SENSATION OF HEAVINESS [None]
  - URTICARIA [None]
